FAERS Safety Report 6801639-6 (Version None)
Quarter: 2010Q2

REPORT INFORMATION
  Report Type: 
  Country: None (occurrence: None)
  Receive Date: 20100629
  Receipt Date: 20100618
  Transmission Date: 20101027
  Serious: Yes (Life-Threatening)
  Sender: FDA-Public Use
  Company Number: GB-WYE-G06294610

PATIENT
  Sex: Female
  Weight: 63.5 kg

DRUGS (5)
  1. VENLAFAXINE HYDROCHLORIDE [Suspect]
     Indication: ANXIETY
     Dosage: 75 MG, FREQUENCY UNKNOWN
     Route: 048
     Dates: start: 20100101, end: 20100401
  2. VENLAFAXINE HYDROCHLORIDE [Suspect]
     Indication: EATING DISORDER
     Dosage: 75 MG, FREQUENCY UNKNOWN
     Route: 048
     Dates: start: 20100501, end: 20100501
  3. TRIMETHOPRIM [Concomitant]
     Indication: URINARY TRACT INFECTION
     Route: 048
     Dates: start: 20100430, end: 20100502
  4. ZOPICLONE [Concomitant]
     Dosage: 7.5 MG, FREQUENCY UNKNOWN
     Route: 048
  5. LANSOPRAZOLE [Concomitant]
     Dosage: 15 MG, FREQUENCY UNKNOWN
     Route: 048

REACTIONS (2)
  - AMNESIA [None]
  - SOMNAMBULISM [None]
